FAERS Safety Report 5296452-8 (Version None)
Quarter: 2007Q2

REPORT INFORMATION
  Report Type: 
  Country: None (occurrence: None)
  Receive Date: 20070413
  Receipt Date: 20070312
  Transmission Date: 20071010
  Serious: Yes (Other)
  Sender: FDA-Public Use
  Company Number: US-SANOFI-SYNTHELABO-A03200702321

PATIENT
  Sex: Male

DRUGS (6)
  1. LASIX [Concomitant]
     Dosage: UNK
     Route: 065
  2. HYDROCHLOROTHIAZIDE [Concomitant]
     Dosage: UNK
     Route: 065
  3. CELEXA [Concomitant]
     Dosage: UNK
     Route: 065
  4. ROXICODONE [Concomitant]
     Dosage: UNK
     Route: 065
  5. OXYCONTIN [Concomitant]
     Dosage: UNK
     Route: 065
  6. AMBIEN [Suspect]
     Indication: INSOMNIA
     Route: 048
     Dates: start: 19980801, end: 20040128

REACTIONS (8)
  - AMNESIA [None]
  - BALANCE DISORDER [None]
  - EATING DISORDER [None]
  - FALL [None]
  - HIP FRACTURE [None]
  - SLEEP WALKING [None]
  - TRANCE [None]
  - WEIGHT INCREASED [None]
